FAERS Safety Report 7428052-5 (Version None)
Quarter: 2011Q2

REPORT INFORMATION
  Report Type: 
  Country: None (occurrence: None)
  Receive Date: 20110421
  Receipt Date: 20110411
  Transmission Date: 20111010
  Serious: Yes (Hospitalization)
  Sender: FDA-Public Use
  Company Number: US-BIOGENIDEC-2010BI043819

PATIENT
  Age: 60 Year
  Sex: Female

DRUGS (2)
  1. AVONEX [Suspect]
     Indication: SECONDARY PROGRESSIVE MULTIPLE SCLEROSIS
     Route: 030
     Dates: start: 19981201, end: 20011201
  2. AVONEX [Suspect]
     Route: 030
     Dates: start: 20020901, end: 20110120

REACTIONS (2)
  - LEUKOPENIA [None]
  - BREAST CANCER STAGE I [None]
